FAERS Safety Report 14025913 (Version 2)
Quarter: 2017Q4

REPORT INFORMATION
  Report Type: Spontaneous
  Country: CN (occurrence: CN)
  Receive Date: 20170929
  Receipt Date: 20171011
  Transmission Date: 20180321
  Serious: Yes (Other)
  Sender: FDA-Public Use
  Company Number: CN-ELI_LILLY_AND_COMPANY-CN201709007557

PATIENT
  Age: 8 Year
  Sex: Male

DRUGS (2)
  1. STRATTERA [Suspect]
     Active Substance: ATOMOXETINE HYDROCHLORIDE
     Dosage: 35 MG, DAILY
     Route: 048
     Dates: start: 20170912
  2. STRATTERA [Suspect]
     Active Substance: ATOMOXETINE HYDROCHLORIDE
     Indication: PSYCHOMOTOR HYPERACTIVITY
     Dosage: 25 MG, DAILY
     Route: 048
     Dates: start: 201708

REACTIONS (11)
  - General physical condition abnormal [Unknown]
  - Attention deficit/hyperactivity disorder [Unknown]
  - Decreased immune responsiveness [Unknown]
  - Weight decreased [Unknown]
  - Swelling face [Unknown]
  - Rhinitis [Unknown]
  - Epistaxis [Unknown]
  - Inappropriate affect [Unknown]
  - Poor quality sleep [Unknown]
  - Drug ineffective [Unknown]
  - Decreased appetite [Unknown]
